FAERS Safety Report 8005136-4 (Version None)
Quarter: 2011Q4

REPORT INFORMATION
  Report Type: 
  Country: None (occurrence: None)
  Receive Date: 20111223
  Receipt Date: 20111214
  Transmission Date: 20120403
  Serious: Yes (Other)
  Sender: FDA-Public Use
  Company Number: PHHY2011DE80190

PATIENT
  Sex: Male
  Weight: 31 kg

DRUGS (21)
  1. ARANESP [Concomitant]
     Dosage: 20 UG, ONCE WEEKLY
     Route: 058
  2. RAMIPRIL 1A PHARMA [Concomitant]
     Dosage: 2.5 MG, UNK
     Route: 048
  3. FUROSEMIDE [Concomitant]
     Dosage: 40 MG, UNK
     Route: 048
  4. DEKRISTOL [Concomitant]
     Dosage: 400 IE
     Route: 048
  5. FOLIC ACID [Concomitant]
     Dosage: 5 MG, UNK
     Route: 048
  6. NEORAL [Suspect]
     Indication: RENAL TRANSPLANT
     Dosage: 75 MG TO 150 MG PER DAY
     Route: 048
     Dates: end: 20110329
  7. SANDIMMUNE [Concomitant]
     Dosage: 10 MG, UNK
     Route: 048
     Dates: end: 20110201
  8. ASTONIN-H [Concomitant]
     Dosage: 0.02 MG, UNK
     Route: 048
  9. MYFORTIC [Concomitant]
     Dosage: 360 MG, UNK
     Route: 048
  10. FERRO SANOL DUODENAL (IRON) [Concomitant]
     Dosage: 100 MG, UNK
     Route: 048
  11. MYFORTIC [Concomitant]
     Dosage: 180 MG, UNK
     Route: 048
  12. ROCALTROL [Concomitant]
     Dosage: 0.25 UG, UNK
     Route: 048
  13. SINGULAIR JUNIOR [Concomitant]
     Dosage: 5 MG, UNK
     Route: 048
  14. NIFURETTEN [Interacting]
     Indication: URINARY TRACT INFECTION
     Dosage: 20 MG, UNK
     Route: 048
  15. ZYVOX [Interacting]
     Indication: URINARY TRACT INFECTION
     Dosage: 600 MG, UNK
     Route: 048
     Dates: end: 20110318
  16. VITARENAL [Concomitant]
  17. NEPHROTRANS [Concomitant]
     Dosage: 0.5 MG, UNK
     Route: 048
  18. CETIRIZINE 10 1A PHARMA [Concomitant]
     Dosage: 10 MG, UNK
     Route: 048
  19. SANDIMMUNE [Concomitant]
     Indication: RENAL TRANSPLANT
     Dosage: 50 MG, UNK
     Route: 048
     Dates: start: 20001201
  20. NITRENDIPINE [Concomitant]
     Dosage: 10 MG, UNK
     Route: 048
  21. MAGNESIUM ^JENAPHARM^ [Concomitant]
     Dosage: 100 MG, UNK
     Route: 048

REACTIONS (1)
  - DRUG LEVEL FLUCTUATING [None]
